FAERS Safety Report 4269311-7 (Version None)
Quarter: 2004Q1

REPORT INFORMATION
  Report Type: 
  Country: None (occurrence: None)
  Receive Date: 20040109
  Receipt Date: 20031125
  Transmission Date: 20041129
  Serious: Yes (Hospitalization)
  Sender: FDA-Public Use
  Company Number: M2004.6714

PATIENT
  Age: 36 Month
  Sex: Female

DRUGS (2)
  1. RIFAMPICIN [Suspect]
     Indication: PULMONARY TUBERCULOSIS
     Dosage: 350MG/M2/D
  2. ERYTHROMYCIN [Concomitant]

REACTIONS (8)
  - DRUG INEFFECTIVE [None]
  - GENERAL PHYSICAL HEALTH DETERIORATION [None]
  - HEPATOMEGALY [None]
  - MYCOBACTERIAL INFECTION [None]
  - PERICARDITIS TUBERCULOUS [None]
  - PYREXIA [None]
  - TACHYPNOEA [None]
  - VEIN DISORDER [None]
